FAERS Safety Report 6390283-3 (Version None)
Quarter: 2009Q4

REPORT INFORMATION
  Report Type: 
  Country: None (occurrence: None)
  Receive Date: 20091003
  Receipt Date: 20090914
  Transmission Date: 20100525
  Serious: Yes (Death, Hospitalization)
  Sender: FDA-Public Use
  Company Number: 2009AL002003

PATIENT
  Age: 50 Year
  Sex: Male
  Weight: 160.5733 kg

DRUGS (31)
  1. DIGOXIN [Suspect]
     Dosage: 0.125MG, DAILY, PO
     Route: 048
  2. DIGOXIN [Suspect]
     Dosage: 0.25 MG, DAILY, PO
     Route: 048
     Dates: start: 20071127
  3. CORDARONE [Concomitant]
  4. ASPIRIN [Concomitant]
  5. COREG [Concomitant]
  6. PLAVIX [Concomitant]
  7. FERO-GRAD [Concomitant]
  8. MAG-OXIDE [Concomitant]
  9. FOLIC ACID [Concomitant]
  10. LASIX [Concomitant]
  11. POTASSIUM CHLORIDE [Concomitant]
  12. PREVACID [Concomitant]
  13. ZOCOR [Concomitant]
  14. INSULIN [Concomitant]
  15. DIOVAN [Concomitant]
  16. LEVAQUIN [Concomitant]
  17. INSPRA [Concomitant]
  18. ASPIRIN [Concomitant]
  19. METFORMIN HYDROCHLORIDE [Concomitant]
  20. ZAROXOLYN [Concomitant]
  21. FLUOXETINE [Concomitant]
  22. NITREX [Concomitant]
  23. ALLOPURINOL [Concomitant]
  24. AMIODARONE [Concomitant]
  25. AMARYL [Concomitant]
  26. ISORDIL [Concomitant]
  27. SPIRONOLACTONE [Concomitant]
  28. SIMVASTATIN [Concomitant]
  29. NYSTATIN [Concomitant]
  30. NITROGLYCERIN [Concomitant]
  31. METOLAZONE [Concomitant]

REACTIONS (21)
  - ANXIETY [None]
  - CARDIAC FAILURE CONGESTIVE [None]
  - CORONARY ARTERY OCCLUSION [None]
  - DEPRESSION [None]
  - DIABETES MELLITUS [None]
  - DIABETES MELLITUS INADEQUATE CONTROL [None]
  - DIZZINESS [None]
  - DYSPNOEA [None]
  - ECONOMIC PROBLEM [None]
  - EJECTION FRACTION DECREASED [None]
  - HYPERTENSION [None]
  - MITRAL VALVE INCOMPETENCE [None]
  - MULTIPLE INJURIES [None]
  - MYOCARDIAL INFARCTION [None]
  - PAIN [None]
  - POLLAKIURIA [None]
  - PULMONARY HYPERTENSION [None]
  - SLEEP APNOEA SYNDROME [None]
  - TRICUSPID VALVE INCOMPETENCE [None]
  - VENTRICULAR TACHYCARDIA [None]
  - WEIGHT INCREASED [None]
